FAERS Safety Report 18095628 (Version 1)
Quarter: 2020Q3

REPORT INFORMATION
  Report Type: Spontaneous
  Country: HR (occurrence: HR)
  Receive Date: 20200730
  Receipt Date: 20200730
  Transmission Date: 20201103
  Serious: Yes (Other)
  Sender: FDA-Public Use
  Company Number: HR-MYLANLABS-2020M1068295

PATIENT
  Age: 36 Year
  Sex: Female

DRUGS (2)
  1. LEPONEX [Suspect]
     Active Substance: CLOZAPINE
     Indication: PRODUCT USED FOR UNKNOWN INDICATION
     Dosage: PATIENT HAS TAKEN MAX 4000 MG (40 TABLETS)
     Route: 048
     Dates: start: 202005, end: 202005
  2. RIVOTRIL [Suspect]
     Active Substance: CLONAZEPAM
     Indication: PRODUCT USED FOR UNKNOWN INDICATION
     Dosage: PATIENT HAS TAKEN MAX 25 MG (WHOLE BOTTLE)
     Route: 048
     Dates: start: 202005, end: 202005

REACTIONS (7)
  - Hypotension [Unknown]
  - Suicide attempt [Unknown]
  - Somnolence [Unknown]
  - Vomiting [Unknown]
  - Slow speech [Unknown]
  - Hypothermia [Unknown]
  - Intentional overdose [Unknown]

NARRATIVE: CASE EVENT DATE: 202005
